APPROVED DRUG PRODUCT: METOCLOPRAMIDE
Active Ingredient: METOCLOPRAMIDE HYDROCHLORIDE
Strength: EQ 5MG BASE/ML
Dosage Form/Route: INJECTABLE;INJECTION
Application: A204756 | Product #001 | TE Code: AP
Applicant: AVET LIFESCIENCES LTD
Approved: Dec 20, 2013 | RLD: No | RS: No | Type: RX